FAERS Safety Report 8554772-5 (Version None)
Quarter: 2012Q3

REPORT INFORMATION
  Report Type: 
  Country: None (occurrence: None)
  Receive Date: 20120731
  Receipt Date: 20120724
  Transmission Date: 20120928
  Serious: Yes (Other)
  Sender: FDA-Public Use
  Company Number: KZ-JNJFOC-20120713624

PATIENT
  Age: 13 Year
  Sex: Male

DRUGS (1)
  1. REMICADE [Suspect]
     Indication: JUVENILE ARTHRITIS
     Dosage: TOTAL RECEIVED 11 INFUSIONS
     Route: 042
     Dates: start: 20100101

REACTIONS (2)
  - BODY TEMPERATURE INCREASED [None]
  - FEELING ABNORMAL [None]
